FAERS Safety Report 7327454-5 (Version None)
Quarter: 2011Q1

REPORT INFORMATION
  Report Type: 
  Country: None (occurrence: None)
  Receive Date: 20110303
  Receipt Date: 20110222
  Transmission Date: 20110831
  Serious: Yes (Hospitalization)
  Sender: FDA-Public Use
  Company Number: US-BIOGENIDEC-2009BI018163

PATIENT
  Age: 44 Year
  Sex: Female
  Weight: 77 kg

DRUGS (3)
  1. AVONEX [Suspect]
     Route: 030
     Dates: start: 20030601, end: 20030801
  2. AVONEX [Suspect]
     Route: 030
     Dates: start: 20030801, end: 20040601
  3. AVONEX [Suspect]
     Indication: MULTIPLE SCLEROSIS
     Route: 030
     Dates: start: 20050102

REACTIONS (5)
  - FOOT FRACTURE [None]
  - NERVE INJURY [None]
  - GAIT DISTURBANCE [None]
  - LUMBAR VERTEBRAL FRACTURE [None]
  - ROAD TRAFFIC ACCIDENT [None]
